FAERS Safety Report 12131686 (Version 1)
Quarter: 2016Q1

REPORT INFORMATION
  Report Type: Spontaneous
  Country: US (occurrence: US)
  Receive Date: 20160301
  Receipt Date: 20160301
  Transmission Date: 20160526
  Serious: No
  Sender: FDA-Public Use
  Company Number: US-JNJFOC-20160105088

PATIENT
  Age: 31 Year
  Sex: Male
  Weight: 81.65 kg

DRUGS (6)
  1. REMICADE [Suspect]
     Active Substance: INFLIXIMAB
     Indication: COLITIS ULCERATIVE
     Dosage: 1 BAG SOLUTION; FIRTS INFUSION. RECEIVED 2 INITIAL DOSES.
     Route: 042
     Dates: start: 20150701
  2. REMICADE [Suspect]
     Active Substance: INFLIXIMAB
     Indication: COLITIS ULCERATIVE
     Dosage: SECOND INFUSION
     Route: 042
     Dates: end: 20151007
  3. BENADRYL [Concomitant]
     Active Substance: DIPHENHYDRAMINE HYDROCHLORIDE
     Route: 065
  4. CANASA [Concomitant]
     Active Substance: MESALAMINE
     Indication: INFLAMMATION
     Route: 065
     Dates: start: 201506, end: 201507
  5. PREDNISONE. [Concomitant]
     Active Substance: PREDNISONE
     Indication: INFLAMMATION
     Route: 065
     Dates: start: 201505, end: 201508
  6. REMICADE [Suspect]
     Active Substance: INFLIXIMAB
     Indication: COLITIS ULCERATIVE
     Dosage: 1 BAG SOLUTION; FIRTS INFUSION. RECEIVED 2 INITIAL DOSES.
     Route: 042
     Dates: start: 201510

REACTIONS (8)
  - Erythema [Recovered/Resolved]
  - Dermatitis contact [Recovered/Resolved]
  - Irritability [Recovered/Resolved]
  - Drug hypersensitivity [Unknown]
  - Urticaria [Recovered/Resolved]
  - Feeling hot [Recovered/Resolved]
  - Rash pruritic [Recovered/Resolved]
  - Pain [Recovered/Resolved]

NARRATIVE: CASE EVENT DATE: 20150705
